FAERS Safety Report 8446027-4 (Version None)
Quarter: 2012Q2

REPORT INFORMATION
  Report Type: 
  Country: None (occurrence: None)
  Receive Date: 20120323
  Receipt Date: 20110628
  Transmission Date: 20120825
  Serious: Yes (Other)
  Sender: FDA-Public Use
  Company Number: 163-21880-11063841

PATIENT
  Age: 74 Year
  Sex: Male
  Weight: 83.4619 kg

DRUGS (14)
  1. CENTRUM SILVER (CENTRUM SILVER) [Concomitant]
  2. ASPIRIN [Concomitant]
  3. PRILOSEC [Concomitant]
  4. XALATAN [Concomitant]
  5. REVLIMID [Suspect]
     Indication: MULTIPLE MYELOMA
     Dosage: 25 MG, D1-21, PO
     Route: 048
     Dates: start: 20110504
  6. TIMOLOL MALEATE [Concomitant]
  7. PERCOCET [Concomitant]
  8. LASIX [Concomitant]
  9. DEXAMETHASONE [Concomitant]
  10. IBUPROFEN [Concomitant]
  11. FLOMAX [Concomitant]
  12. COMBIGAN (COMBIGAN) [Concomitant]
  13. NEURONTIN [Concomitant]
  14. QUESTRAN [Concomitant]

REACTIONS (1)
  - GENERALISED OEDEMA [None]
